FAERS Safety Report 6535558-X (Version None)
Quarter: 2010Q1

REPORT INFORMATION
  Report Type: 
  Country: None (occurrence: None)
  Receive Date: 20100113
  Receipt Date: 20100106
  Transmission Date: 20100710
  Serious: Yes (Death, Hospitalization)
  Sender: FDA-Public Use
  Company Number: KR-ELI_LILLY_AND_COMPANY-KR201001001114

PATIENT
  Sex: Male
  Weight: 52.65 kg

DRUGS (10)
  1. PEMETREXED [Suspect]
     Indication: NON-SMALL CELL LUNG CANCER
     Dosage: 780 MG/M2, DAY 1
     Route: 042
     Dates: start: 20071026
  2. FOLIC ACID [Concomitant]
     Indication: PROPHYLAXIS
     Dosage: 1 MG, UNK
     Route: 048
     Dates: start: 20071025, end: 20071203
  3. VITAMIN B-12 [Concomitant]
     Indication: PROPHYLAXIS
     Dosage: 1 MG, UNK
     Route: 030
     Dates: start: 20071025, end: 20071025
  4. DEXAMETHASONE [Concomitant]
     Indication: PROPHYLAXIS
     Dosage: 20 MG, UNK
     Route: 042
     Dates: start: 20071006, end: 20071119
  5. PHENIRAMINE [Concomitant]
     Indication: ALLERGY PROPHYLAXIS
     Dosage: UNK, UNK
     Dates: start: 20071026, end: 20071119
  6. NASEA [Concomitant]
     Indication: NAUSEA
     Dosage: UNK, UNK
     Dates: start: 20071026, end: 20071122
  7. METHYLPREDNISOLONE SODIUM SUCCINATE [Concomitant]
     Indication: STEROID THERAPY
     Dosage: UNK, UNK
     Dates: start: 20071125, end: 20071126
  8. PREDNISOLONE [Concomitant]
     Indication: STEROID THERAPY
     Dosage: UNK, UNK
     Dates: start: 20071129, end: 20071129
  9. PLATELETS [Concomitant]
     Indication: ANAEMIA
     Dosage: 2 PINTS
     Dates: start: 20071111
  10. TARCEVA [Concomitant]
     Dates: start: 20071031

REACTIONS (5)
  - DYSPNOEA [None]
  - NAUSEA [None]
  - PNEUMONIA [None]
  - THROMBOCYTOPENIA [None]
  - VOMITING [None]
